FAERS Safety Report 7940701-1 (Version None)
Quarter: 2011Q4

REPORT INFORMATION
  Report Type: 
  Country: None (occurrence: None)
  Receive Date: 20111128
  Receipt Date: 20111117
  Transmission Date: 20120403
  Serious: Yes (Life-Threatening, Hospitalization)
  Sender: FDA-Public Use
  Company Number: JP-JNJFOC-20111008551

PATIENT
  Sex: Male

DRUGS (13)
  1. CODEINE PHOSPHATE HEMIHYDRATE [Concomitant]
     Indication: PAIN
     Dosage: AS NECESSARY
     Route: 048
     Dates: end: 20110613
  2. GABAPENTIN [Concomitant]
     Indication: PAIN
     Route: 048
     Dates: end: 20110613
  3. FENTANYL-100 [Suspect]
     Route: 062
     Dates: start: 20110318, end: 20110422
  4. TEGRETOL [Concomitant]
     Indication: PAIN
     Route: 048
     Dates: end: 20110613
  5. VOLTAREN [Concomitant]
     Indication: PAIN
     Route: 054
     Dates: end: 20110613
  6. CLONAZEPAM [Concomitant]
     Indication: PAIN
     Route: 048
     Dates: end: 20110613
  7. CODEINE PHOSPHATE HEMIHYDRATE [Concomitant]
     Route: 048
     Dates: start: 20110408
  8. FENTANYL-100 [Suspect]
     Route: 062
     Dates: start: 20110423, end: 20110513
  9. CODEINE PHOSPHATE HEMIHYDRATE [Concomitant]
     Route: 048
     Dates: start: 20110318
  10. SHAKUYAKUKANZOUTOU [Concomitant]
     Indication: PAIN
     Route: 048
     Dates: end: 20110613
  11. FENTANYL-100 [Suspect]
     Indication: PAIN
     Route: 062
     Dates: start: 20110514, end: 20110613
  12. CODEINE PHOSPHATE HEMIHYDRATE [Concomitant]
     Route: 048
     Dates: start: 20110401
  13. CODEINE PHOSPHATE HEMIHYDRATE [Concomitant]
     Route: 048
     Dates: start: 20110325

REACTIONS (5)
  - CHOLELITHIASIS [None]
  - SEPTIC SHOCK [None]
  - CHOLECYSTITIS [None]
  - SOMNOLENCE [None]
  - NAUSEA [None]
